FAERS Safety Report 8206409-2 (Version None)
Quarter: 2012Q1

REPORT INFORMATION
  Report Type: 
  Country: None (occurrence: None)
  Receive Date: 20120313
  Receipt Date: 20120308
  Transmission Date: 20120608
  Serious: No
  Sender: FDA-Public Use
  Company Number: PHEH2012US005409

PATIENT
  Sex: Female

DRUGS (6)
  1. CENESTIN [Concomitant]
     Dosage: UNK UKN, UNK
  2. PROPRANOLOL [Concomitant]
     Dosage: UNK UKN, UNK
  3. PHENYTOIN [Concomitant]
     Dosage: UNK UKN, UNK
  4. LORAZEPAM [Concomitant]
     Dosage: UNK UKN, UNK
  5. HYDROCODONE BITARTRATE AND ACETAMINOPHEN [Concomitant]
     Dosage: UNK UKN, UNK
  6. TASIGNA [Suspect]
     Indication: CHRONIC MYELOID LEUKAEMIA
     Dosage: 400 MG, BID
     Route: 048
     Dates: start: 20091111

REACTIONS (3)
  - NAUSEA [None]
  - INFLUENZA LIKE ILLNESS [None]
  - MYALGIA [None]
